FAERS Safety Report 7395061-4 (Version None)
Quarter: 2011Q1

REPORT INFORMATION
  Report Type: 
  Country: None (occurrence: None)
  Receive Date: 20110331
  Receipt Date: 20110331
  Transmission Date: 20110831
  Serious: No
  Sender: FDA-Public Use
  Company Number: None

PATIENT
  Age: 80 Year
  Sex: Female

DRUGS (6)
  1. LETAIRIS [Suspect]
     Dosage: 5MG DAILY ORALLY
     Route: 048
  2. ALLOPURINOL [Concomitant]
  3. FUROSEMIDE [Concomitant]
  4. FAMOTIDINE [Concomitant]
  5. ADCIRCA [Concomitant]
  6. ALENDRONATE SODIUM [Concomitant]

REACTIONS (2)
  - OEDEMA [None]
  - DYSPNOEA [None]
